FAERS Safety Report 4910798-1 (Version None)
Quarter: 2006Q1

REPORT INFORMATION
  Report Type: 
  Country: None (occurrence: None)
  Receive Date: 20060214
  Receipt Date: 20060203
  Transmission Date: 20060701
  Serious: Yes (Hospitalization)
  Sender: FDA-Public Use
  Company Number: JP-JNJFOC-20060200930

PATIENT
  Sex: Male
  Weight: 59 kg

DRUGS (9)
  1. REMICADE [Suspect]
     Route: 042
  2. REMICADE [Suspect]
     Route: 042
  3. REMICADE [Suspect]
     Indication: RHEUMATOID ARTHRITIS
     Route: 042
  4. CYTOTEC [Concomitant]
     Indication: GASTROINTESTINAL DISORDER THERAPY
     Route: 048
  5. RHEUMATREX [Concomitant]
     Indication: RHEUMATOID ARTHRITIS
     Route: 048
  6. ISONIAZID [Concomitant]
     Indication: ANTIBIOTIC PROPHYLAXIS
     Route: 048
  7. FOLIAMIN [Concomitant]
     Indication: LIVER DISORDER
     Route: 048
  8. PROMAC (JPN) [Concomitant]
     Indication: GASTROINTESTINAL DISORDER THERAPY
  9. LORNOXICAM [Concomitant]
     Indication: RHEUMATOID ARTHRITIS
     Route: 048

REACTIONS (2)
  - ALANINE AMINOTRANSFERASE INCREASED [None]
  - RETINAL VEIN OCCLUSION [None]
